FAERS Safety Report 5898942-3 (Version None)
Quarter: 2008Q3

REPORT INFORMATION
  Report Type: 
  Country: None (occurrence: None)
  Receive Date: 20080925
  Receipt Date: 20080911
  Transmission Date: 20090109
  Serious: Yes (Other)
  Sender: FDA-Public Use
  Company Number: GB-BAUSCH-2008BL003956

PATIENT
  Age: 73 Year
  Sex: Female

DRUGS (5)
  1. PILOCARPINE [Suspect]
     Indication: INTRAOCULAR PRESSURE INCREASED
     Route: 047
  2. LATANOPROST [Suspect]
     Indication: INTRAOCULAR PRESSURE INCREASED
     Route: 047
  3. ACETAZOLAMIDE [Suspect]
     Indication: INTRAOCULAR PRESSURE INCREASED
  4. ATROPINE [Suspect]
     Indication: CYCLOPLEGIA
     Route: 047
  5. ATROPINE [Suspect]
     Indication: EYE INFLAMMATION
     Route: 047

REACTIONS (2)
  - ANGLE CLOSURE GLAUCOMA [None]
  - DRUG INEFFECTIVE [None]
